FAERS Safety Report 13950469 (Version 2)
Quarter: 2017Q4

REPORT INFORMATION
  Report Type: Spontaneous
  Country: IT (occurrence: IT)
  Receive Date: 20170908
  Receipt Date: 20171106
  Transmission Date: 20180320
  Serious: Yes (Hospitalization)
  Sender: FDA-Public Use
  Company Number: IT-PFIZER INC-2017383812

PATIENT
  Age: 69 Year
  Sex: Female

DRUGS (8)
  1. OMEPRAZOLE. [Concomitant]
     Active Substance: OMEPRAZOLE
     Dosage: 40 MG, UNK
  2. LENDORMIN [Interacting]
     Active Substance: BROTIZOLAM
     Indication: DEPRESSION
     Dosage: 1 DF, DAILY
     Dates: start: 20161103, end: 20161214
  3. FULCRO [Concomitant]
     Active Substance: FENOFIBRATE
     Dosage: UNK
  4. PAROXETINE. [Concomitant]
     Active Substance: PAROXETINE
     Dosage: 40 MG, UNK
  5. ALPRAZOLAM. [Suspect]
     Active Substance: ALPRAZOLAM
     Indication: DEPRESSION
     Dosage: 15 GTT, DAILY
     Dates: start: 20161103, end: 20161214
  6. TRITTICO [Concomitant]
     Active Substance: TRAZODONE HYDROCHLORIDE
     Dosage: 1 DF, UNK
  7. OLANZAPINE. [Concomitant]
     Active Substance: OLANZAPINE
     Dosage: UNK
  8. FRONTAL [Interacting]
     Active Substance: ALPRAZOLAM
     Indication: DEPRESSION
     Dosage: 3 DF, DAILY
     Dates: start: 20161018, end: 20161214

REACTIONS (3)
  - Bradyphrenia [Recovered/Resolved]
  - Drug interaction [Recovered/Resolved]
  - Hypokinesia [Recovered/Resolved]

NARRATIVE: CASE EVENT DATE: 2016
